FAERS Safety Report 8373367 (Version 3)
Quarter: 2012Q4

REPORT INFORMATION
  Report Type: 
  Country: US (occurrence: US)
  Receive Date: 20120131
  Receipt Date: 20121001
  Transmission Date: 20130627
  Serious: Yes (Hospitalization)
  Sender: FDA-Public Use
  Company Number: US-BAYER-2012-007541

PATIENT
  Age: 22 Year
  Sex: Female
  Weight: 58.96 kg

DRUGS (3)
  1. YAZ [Suspect]
     Dosage: UNK
     Dates: start: 200811, end: 200909
  2. PROPOFOL [Concomitant]
  3. KEPPRA [Concomitant]
     Indication: SIMPLE PARTIAL SEIZURES

REACTIONS (7)
  - Cerebrovascular accident [None]
  - Superior sagittal sinus thrombosis [Recovered/Resolved]
  - Pain [None]
  - Emotional distress [None]
  - Injury [None]
  - Headache [None]
  - Convulsion [None]
